FAERS Safety Report 11106652 (Version 2)
Quarter: 2015Q2

REPORT INFORMATION
  Report Type: Spontaneous
  Country: US (occurrence: US)
  Receive Date: 20150512
  Receipt Date: 20150526
  Transmission Date: 20150821
  Serious: No
  Sender: FDA-Public Use
  Company Number: US-PFIZER INC-2015151843

PATIENT
  Age: 34 Year
  Sex: Female
  Weight: 68 kg

DRUGS (1)
  1. ADVIL [Suspect]
     Active Substance: IBUPROFEN
     Indication: HEADACHE
     Dosage: 200 MG, UNK
     Route: 048

REACTIONS (6)
  - Nervousness [Unknown]
  - Feeling abnormal [Unknown]
  - Vomiting [Unknown]
  - Mobility decreased [Unknown]
  - Aphasia [Unknown]
  - Irritability [Unknown]
